FAERS Safety Report 6892391-7 (Version None)
Quarter: 2010Q3

REPORT INFORMATION
  Report Type: 
  Country: None (occurrence: None)
  Receive Date: 20100731
  Receipt Date: 20080513
  Transmission Date: 20110219
  Serious: No
  Sender: FDA-Public Use
  Company Number: US-PFIZER INC-2008038680

PATIENT
  Age: 65 Year
  Sex: Male
  Weight: 83.91 kg

DRUGS (6)
  1. AMLODIPINE [Suspect]
     Indication: BLOOD PRESSURE
  2. OMEPRAZOLE [Concomitant]
     Indication: GASTROOESOPHAGEAL REFLUX DISEASE
  3. METOPROLOL TARTRATE [Concomitant]
  4. NIASPAN [Concomitant]
  5. VALSARTAN [Concomitant]
  6. NORVASC [Concomitant]

REACTIONS (2)
  - APHTHOUS STOMATITIS [None]
  - BLOOD PRESSURE INADEQUATELY CONTROLLED [None]
